FAERS Safety Report 21268365 (Version 2)
Quarter: 2022Q4

REPORT INFORMATION
  Report Type: Spontaneous
  Country: US (occurrence: US)
  Receive Date: 20220830
  Receipt Date: 20221020
  Transmission Date: 20230113
  Serious: Yes (Other)
  Sender: FDA-Public Use
  Company Number: US-JNJFOC-20220849687

PATIENT
  Age: 40 Year
  Sex: Female

DRUGS (10)
  1. ELMIRON [Suspect]
     Active Substance: PENTOSAN POLYSULFATE SODIUM
     Indication: Cystitis interstitial
     Dosage: 2-3 X DAILY
     Route: 048
     Dates: start: 200311, end: 202001
  2. GABAPENTIN [Concomitant]
     Active Substance: GABAPENTIN
     Indication: Cystitis interstitial
     Dates: start: 2002
  3. GABAPENTIN [Concomitant]
     Active Substance: GABAPENTIN
     Indication: Demyelinating polyneuropathy
  4. DIAZEPAM [Concomitant]
     Active Substance: DIAZEPAM
     Indication: Demyelinating polyneuropathy
     Dates: start: 2001
  5. AMITRIPTYLINE [Concomitant]
     Active Substance: AMITRIPTYLINE
     Indication: Demyelinating polyneuropathy
     Dates: start: 2001
  6. RALOXIFENE [Concomitant]
     Active Substance: RALOXIFENE
     Dates: start: 2021, end: 2021
  7. VITAMIN B12 [Concomitant]
     Active Substance: CYANOCOBALAMIN
     Indication: Vitamin B12 deficiency
     Dates: start: 2016, end: 2021
  8. ERGOCALCIFEROL [Concomitant]
     Active Substance: ERGOCALCIFEROL
     Indication: Vitamin D deficiency
     Dates: start: 2016, end: 2021
  9. ESTRADIOL [Concomitant]
     Active Substance: ESTRADIOL
     Indication: Hormone therapy
     Dates: start: 2017, end: 2020
  10. SULFAMETHOXAZOLE\TRIMETHOPRIM [Concomitant]
     Active Substance: SULFAMETHOXAZOLE\TRIMETHOPRIM
     Indication: Infection
     Dates: start: 2019, end: 2019

REACTIONS (3)
  - Retinal pigmentation [Unknown]
  - Maculopathy [Unknown]
  - Off label use [Unknown]

NARRATIVE: CASE EVENT DATE: 20031101
